FAERS Safety Report 6855901-1 (Version None)
Quarter: 2010Q3

REPORT INFORMATION
  Report Type: 
  Country: None (occurrence: None)
  Receive Date: 20100719
  Receipt Date: 20100707
  Transmission Date: 20110219
  Serious: Yes (Hospitalization)
  Sender: FDA-Public Use
  Company Number: US-CELGENEUS-163-21880-10070552

PATIENT
  Sex: Male

DRUGS (5)
  1. REVLIMID [Suspect]
     Indication: MULTIPLE MYELOMA
     Route: 048
     Dates: start: 20100401, end: 20100501
  2. REVLIMID [Suspect]
     Route: 048
     Dates: start: 20100709
  3. REVLIMID [Suspect]
     Route: 048
     Dates: start: 20090401
  4. REVLIMID [Suspect]
     Route: 048
     Dates: start: 20100301
  5. VIDAZA [Suspect]
     Indication: PRODUCT USED FOR UNKNOWN INDICATION
     Route: 065

REACTIONS (2)
  - DIZZINESS [None]
  - ILEUS PARALYTIC [None]
